FAERS Safety Report 8086731-3 (Version None)
Quarter: 2012Q1

REPORT INFORMATION
  Report Type: 
  Country: None (occurrence: None)
  Receive Date: 20120128
  Receipt Date: 20110613
  Transmission Date: 20120608
  Serious: No
  Sender: FDA-Public Use
  Company Number: US-ABBOTT-11P-163-0732020-00

PATIENT
  Age: 69 Year
  Sex: Female

DRUGS (9)
  1. PREDNISONE TAB [Concomitant]
     Indication: CROHN'S DISEASE
     Dosage: WILL BE DISCONTINUING AT END OF WEEK
  2. PROTONIX [Concomitant]
     Indication: CROHN'S DISEASE
     Dosage: DAILY
  3. LOMITIL OTC [Concomitant]
     Indication: DIARRHOEA
  4. DARVOCET [Concomitant]
     Indication: PAIN
  5. HUMIRA [Suspect]
     Indication: CROHN'S DISEASE
     Dates: start: 20110523
  6. DARVOCET [Concomitant]
     Indication: CROHN'S DISEASE
     Dosage: 100/650 1/2 TAB AS REQUIRED
  7. VITAMIN B-12 [Concomitant]
     Indication: VITAMIN B12 DECREASED
  8. ACTONEL [Concomitant]
     Indication: OSTEOPOROSIS
  9. VIT D WITH CALCIUM [Concomitant]
     Indication: VITAMIN SUPPLEMENTATION

REACTIONS (1)
  - BLOOD PRESSURE DECREASED [None]
